FAERS Safety Report 9035819 (Version 1)
Quarter: 2013Q1

REPORT INFORMATION
  Report Type: Report from Study
  Country: US (occurrence: US)
  Receive Date: 20130129
  Receipt Date: 20130129
  Transmission Date: 20140127
  Serious: No
  Sender: FDA-Public Use
  Company Number: US-ABBOTT-12P-163-0927573-00

PATIENT
  Sex: Male
  Weight: 99.88 kg

DRUGS (13)
  1. HUMIRA 40 MG/0.8 ML PEN [Suspect]
     Indication: PSORIATIC ARTHROPATHY
     Route: 058
     Dates: start: 2010, end: 20120402
  2. METHOTREXATE [Concomitant]
     Indication: PSORIATIC ARTHROPATHY
     Route: 048
  3. PREDNISONE [Concomitant]
     Indication: PSORIATIC ARTHROPATHY
  4. ATENOLOL [Concomitant]
     Indication: TACHYCARDIA
     Dosage: 1/2 TAB DAILY
  5. CITALOPRAM [Concomitant]
     Indication: DEPRESSION
  6. XANAX [Concomitant]
     Indication: ANXIETY
  7. OMEPRAZOLE [Concomitant]
     Indication: GASTROOESOPHAGEAL REFLUX DISEASE
  8. FOLIC ACID [Concomitant]
     Indication: POLYMEDICATION
  9. GLUCOSAMINE CHONDROITIN [Concomitant]
     Indication: ARTHROPATHY
  10. ASPIRIN [Concomitant]
     Indication: FAMILIAL RISK FACTOR
     Route: 048
  11. SALSALATE [Concomitant]
     Indication: INFLAMMATION
  12. OXYBUTYNIN CHLORIDE [Concomitant]
     Indication: PRODUCT USED FOR UNKNOWN INDICATION
  13. TAMSULOSIN [Concomitant]
     Indication: PROSTATOMEGALY

REACTIONS (4)
  - Swelling [Not Recovered/Not Resolved]
  - Condition aggravated [Not Recovered/Not Resolved]
  - Drug ineffective [Not Recovered/Not Resolved]
  - Pain [Not Recovered/Not Resolved]
